FAERS Safety Report 8935562 (Version 1)
Quarter: 2012Q4

REPORT INFORMATION
  Report Type: 
  Country: CL (occurrence: CL)
  Receive Date: 20121130
  Receipt Date: 20121130
  Transmission Date: 20130627
  Serious: Yes (Death, Life-Threatening, Hospitalization)
  Sender: FDA-Public Use
  Company Number: PHHY2012CL109828

PATIENT
  Age: 87 Year
  Sex: Female

DRUGS (4)
  1. TAREG [Suspect]
     Indication: HYPERTENSION
     Dosage: 160 mg, QD (at night)
  2. CARDIOLEN [Concomitant]
  3. SPIRONOLACTONE [Concomitant]
  4. VASTAREL [Concomitant]
     Dosage: UNK UKN, UNK

REACTIONS (1)
  - Pulmonary oedema [Fatal]
